FAERS Safety Report 6644084-9 (Version None)
Quarter: 2010Q1

REPORT INFORMATION
  Report Type: 
  Country: None (occurrence: None)
  Receive Date: 20100311
  Receipt Date: 20100303
  Transmission Date: 20100710
  Serious: Yes (Hospitalization)
  Sender: FDA-Public Use
  Company Number: 2010022219

PATIENT
  Age: 37 Year
  Sex: Female

DRUGS (5)
  1. SANDOGLOBULIN (IMMUNE GLOBULIN INTRAVENOUS (HUMAN) ) LOT# 4303900043, [Suspect]
  2. SANDOGLOBULIN (IMMUNE GLOBULIN INTRAVENOUS (HUMAN) ) LOT# 4303900043, [Suspect]
  3. SANDOGLOBULIN (IMMUNE GLOBULIN INTRAVENOUS (HUMAN) ) LOT# 4303900043, [Suspect]
  4. SANDOGLOBULIN (IMMUNE GLOBULIN INTRAVENOUS (HUMAN) ) LOT# 4303900043, [Suspect]
  5. . [Concomitant]

REACTIONS (3)
  - BACTERAEMIA [None]
  - CHILLS [None]
  - PYREXIA [None]
